FAERS Safety Report 7766600-6 (Version None)
Quarter: 2011Q3

REPORT INFORMATION
  Report Type: 
  Country: None (occurrence: None)
  Receive Date: 20110916
  Receipt Date: 20110901
  Transmission Date: 20111222
  Serious: Yes (Hospitalization)
  Sender: FDA-Public Use
  Company Number: 2011SGN00131

PATIENT
  Age: 44 Year
  Sex: Male
  Weight: 91.2 kg

DRUGS (15)
  1. BLEOMYCIN SULFATE [Suspect]
     Indication: HODGKIN'S DISEASE
     Dosage: 10 UNITS/M2, Q14D, INTRAVENOUS
     Route: 042
     Dates: start: 20110210, end: 20110630
  2. NEULASTA [Concomitant]
  3. DOXORUBICIN HCL [Suspect]
     Indication: HODGKIN'S DISEASE
     Dosage: 25 MG/M2, Q14D, INTRAVENOUS
     Route: 042
     Dates: start: 20110210, end: 20110630
  4. GRANISETRON (GRANISETRON HYDROCHLORIDE) [Concomitant]
  5. ALLOPURINOL [Concomitant]
  6. SGN-35 (CAC10-VCMMAE) INJECTION [Suspect]
     Indication: HODGKIN'S DISEASE
     Dosage: 0.9 MG/KG, QCYCLE, INTRAVENOUS
     Route: 042
     Dates: start: 20110210, end: 20110630
  7. LISINOPRIL [Concomitant]
  8. PHENERGAN [Concomitant]
  9. PEPCID [Concomitant]
  10. ULTRAM [Concomitant]
  11. VINBLASTINE SULFATE [Suspect]
     Indication: HODGKIN'S DISEASE
     Dosage: 6 MG/M2, Q14D, INTRAVENOUS
     Route: 042
     Dates: start: 20110210, end: 20110630
  12. DACARBAZINE [Suspect]
     Indication: HODGKIN'S DISEASE
     Dosage: 375 MG/M2, Q14D, INTRAVENOUS
     Route: 042
     Dates: start: 20110210, end: 20110630
  13. ZOFRAN [Concomitant]
  14. LYRICA [Concomitant]
  15. ATIVAN [Concomitant]

REACTIONS (1)
  - PNEUMONIA [None]
